FAERS Safety Report 16198365 (Version 2)
Quarter: 2019Q2

REPORT INFORMATION
  Report Type: Spontaneous
  Country: US (occurrence: US)
  Receive Date: 20190415
  Receipt Date: 20190524
  Transmission Date: 20190711
  Serious: No
  Sender: FDA-Public Use
  Company Number: US-BAYER-2019-070892

PATIENT
  Age: 62 Year
  Sex: Female
  Weight: 45 kg

DRUGS (3)
  1. LINZESS [Concomitant]
     Active Substance: LINACLOTIDE
  2. MIRALAX [Suspect]
     Active Substance: POLYETHYLENE GLYCOL 3350
     Indication: GASTROINTESTINAL DISORDER
     Dosage: 17 MG, QID
     Route: 048
     Dates: start: 2009, end: 20190408
  3. DOCUSATE SODIUM. [Concomitant]
     Active Substance: DOCUSATE SODIUM

REACTIONS (5)
  - Incorrect dosage administered [Unknown]
  - Product taste abnormal [None]
  - Dry mouth [Unknown]
  - Product use issue [Unknown]
  - Product solubility abnormal [None]

NARRATIVE: CASE EVENT DATE: 20190408
